FAERS Safety Report 4447468-2 (Version None)
Quarter: 2004Q3

REPORT INFORMATION
  Report Type: 
  Country: None (occurrence: None)
  Receive Date: 20040823
  Receipt Date: 20040503
  Transmission Date: 20050211
  Serious: No
  Sender: FDA-Public Use
  Company Number: PHEH2004US04841

PATIENT
  Age: 67 Year
  Sex: Female

DRUGS (4)
  1. ZELNORM [Suspect]
     Dosage: 6 MG BID ORAL
     Route: 048
     Dates: start: 20040301, end: 20040309
  2. CELEBREX [Concomitant]
  3. LIPITOR [Concomitant]
  4. CONJUGATED ESTROGEN [Concomitant]

REACTIONS (3)
  - DIARRHOEA [None]
  - NAUSEA [None]
  - VOMITING [None]
